FAERS Safety Report 4342895-6 (Version None)
Quarter: 2004Q2

REPORT INFORMATION
  Report Type: 
  Country: None (occurrence: None)
  Receive Date: 20040416
  Receipt Date: 20040402
  Transmission Date: 20050107
  Serious: Yes (Death)
  Sender: FDA-Public Use
  Company Number: 2013989

PATIENT
  Age: 60 Year
  Sex: Male

DRUGS (2)
  1. OXYCONTIN [Suspect]
     Dosage: ORAL
     Route: 048
  2. DILAUDID [Suspect]

REACTIONS (4)
  - INJURY [None]
  - OVERDOSE [None]
  - ROAD TRAFFIC ACCIDENT [None]
  - VICTIM OF HOMICIDE [None]
